FAERS Safety Report 9832588 (Version 1)
Quarter: 2014Q1

REPORT INFORMATION
  Report Type: Spontaneous
  Country: GB (occurrence: GB)
  Receive Date: 20140121
  Receipt Date: 20140121
  Transmission Date: 20141002
  Serious: Yes (Other)
  Sender: FDA-Public Use
  Company Number: GB-ELI_LILLY_AND_COMPANY-GB201401003500

PATIENT
  Age: 16 Year
  Sex: Female

DRUGS (2)
  1. ZYPADHERA [Suspect]
     Indication: PRODUCT USED FOR UNKNOWN INDICATION
     Dosage: 300 DF, MONTHLY (1/M)
     Route: 065
     Dates: start: 201311, end: 20131212
  2. ZYPADHERA [Suspect]
     Dosage: 210 DF, 2/M
     Route: 065
     Dates: start: 20131226

REACTIONS (2)
  - Thrombocytopenia [Not Recovered/Not Resolved]
  - Sedation [Unknown]
